FAERS Safety Report 4900962-X (Version None)
Quarter: 2006Q1

REPORT INFORMATION
  Report Type: 
  Country: None (occurrence: None)
  Receive Date: 20060113
  Receipt Date: 20050915
  Transmission Date: 20060701
  Serious: No
  Sender: FDA-Public Use
  Company Number: 2005SP000969

PATIENT
  Age: 54 Year
  Sex: Female
  Weight: 81.6475 kg

DRUGS (6)
  1. LUNESTA [Suspect]
     Indication: MIDDLE INSOMNIA
     Dosage: 2 MG, HS, ORAL
     Route: 048
     Dates: start: 20050430, end: 20050101
  2. SYNTHROID [Concomitant]
  3. ATENOLOL [Concomitant]
  4. ASPIRIN [Concomitant]
  5. EVISTA [Concomitant]
  6. ZETIA [Concomitant]

REACTIONS (1)
  - DYSGEUSIA [None]
